FAERS Safety Report 6897419-6 (Version None)
Quarter: 2010Q3

REPORT INFORMATION
  Report Type: 
  Country: None (occurrence: None)
  Receive Date: 20100802
  Receipt Date: 20070515
  Transmission Date: 20110219
  Serious: Yes (Other)
  Sender: FDA-Public Use
  Company Number: US-PFIZER INC-2007039976

PATIENT
  Sex: Female
  Weight: 77.272 kg

DRUGS (1)
  1. LYRICA [Suspect]
     Indication: NEUROPATHY PERIPHERAL
     Dosage: ONCE DAILY
     Dates: start: 20060101, end: 20070509

REACTIONS (9)
  - ABNORMAL BEHAVIOUR [None]
  - AGITATION [None]
  - ANXIETY [None]
  - ATAXIA [None]
  - COGNITIVE DISORDER [None]
  - DRUG INEFFECTIVE [None]
  - MEMORY IMPAIRMENT [None]
  - SPEECH DISORDER [None]
  - THINKING ABNORMAL [None]
